FAERS Safety Report 14760082 (Version 2)
Quarter: 2019Q1

REPORT INFORMATION
  Report Type: Spontaneous
  Country: US (occurrence: US)
  Receive Date: 20180413
  Receipt Date: 20190328
  Transmission Date: 20190417
  Serious: Yes (Other)
  Sender: FDA-Public Use
  Company Number: US-ASTRAZENECA-2018SE43704

PATIENT
  Age: 22503 Day
  Sex: Male
  Weight: 96 kg

DRUGS (37)
  1. NEXIUM [Suspect]
     Active Substance: ESOMEPRAZOLE MAGNESIUM
     Route: 048
     Dates: start: 200801, end: 201712
  2. PRILOSEC [Suspect]
     Active Substance: OMEPRAZOLE MAGNESIUM
     Route: 048
     Dates: start: 200801, end: 201712
  3. PREVACID [Suspect]
     Active Substance: LANSOPRAZOLE
     Route: 065
     Dates: start: 200801, end: 201712
  4. LORAZEPAM. [Concomitant]
     Active Substance: LORAZEPAM
  5. LISINOPRIL. [Concomitant]
     Active Substance: LISINOPRIL
  6. PROAIR HFA [Concomitant]
     Active Substance: ALBUTEROL SULFATE
  7. ASPIRIN. [Concomitant]
     Active Substance: ASPIRIN
  8. ALLOPURINOL. [Concomitant]
     Active Substance: ALLOPURINOL
  9. CLONIDINE. [Concomitant]
     Active Substance: CLONIDINE
  10. AMITIZA [Concomitant]
     Active Substance: LUBIPROSTONE
  11. PRILOSEC [Suspect]
     Active Substance: OMEPRAZOLE MAGNESIUM
     Route: 048
     Dates: start: 200304, end: 201312
  12. CEPHALEXIN. [Concomitant]
     Active Substance: CEPHALEXIN
  13. ONDANSETRON [Concomitant]
     Active Substance: ONDANSETRON
  14. LANTUS [Concomitant]
     Active Substance: INSULIN GLARGINE
  15. AZITHROMYCIN ANHYDROUS. [Concomitant]
     Active Substance: AZITHROMYCIN ANHYDROUS
  16. PREVACID 24 HR [Suspect]
     Active Substance: LANSOPRAZOLE
     Route: 065
     Dates: start: 200801, end: 201712
  17. AMLODIPINE [Concomitant]
     Active Substance: AMLODIPINE BESYLATE
  18. CRESTOR [Concomitant]
     Active Substance: ROSUVASTATIN CALCIUM
  19. NEXIUM 24HR [Suspect]
     Active Substance: ESOMEPRAZOLE MAGNESIUM
     Route: 048
     Dates: start: 200801, end: 201712
  20. DEXILANT [Suspect]
     Active Substance: DEXLANSOPRAZOLE
     Route: 065
     Dates: start: 200801, end: 201712
  21. PROTONIX [Suspect]
     Active Substance: PANTOPRAZOLE SODIUM
     Route: 065
     Dates: start: 200801, end: 201712
  22. FAMOTIDINE. [Concomitant]
     Active Substance: FAMOTIDINE
  23. METOCLOPRAMIDE. [Concomitant]
     Active Substance: METOCLOPRAMIDE
  24. CARVEDILOL. [Concomitant]
     Active Substance: CARVEDILOL
  25. TRAMADOL. [Concomitant]
     Active Substance: TRAMADOL
  26. PRILOSEC OTC [Suspect]
     Active Substance: OMEPRAZOLE MAGNESIUM
     Route: 048
     Dates: start: 200304, end: 201312
  27. CLINDAMYCIN. [Concomitant]
     Active Substance: CLINDAMYCIN
  28. HYDROCODONE [Concomitant]
     Active Substance: HYDROCODONE
  29. MINOXIDIL. [Concomitant]
     Active Substance: MINOXIDIL
  30. GLIPIZIDE. [Concomitant]
     Active Substance: GLIPIZIDE
  31. CARVEDILOL. [Concomitant]
     Active Substance: CARVEDILOL
  32. TETRACYCLINE [Concomitant]
     Active Substance: TETRACYCLINE
  33. PRILOSEC OTC [Suspect]
     Active Substance: OMEPRAZOLE MAGNESIUM
     Route: 048
     Dates: start: 200801, end: 201712
  34. PREVACID [Suspect]
     Active Substance: LANSOPRAZOLE
     Route: 065
     Dates: start: 200304, end: 201312
  35. ATENOLOL. [Concomitant]
     Active Substance: ATENOLOL
  36. DIOVAN [Concomitant]
     Active Substance: VALSARTAN
  37. GUAIFENESIN. [Concomitant]
     Active Substance: GUAIFENESIN

REACTIONS (7)
  - End stage renal disease [Unknown]
  - Acute kidney injury [Unknown]
  - Chronic kidney disease [Unknown]
  - Renal injury [Unknown]
  - Renal failure [Unknown]
  - Nephrogenic anaemia [Unknown]
  - Hyperparathyroidism secondary [Unknown]

NARRATIVE: CASE EVENT DATE: 20161209
